FAERS Safety Report 5580955-2 (Version None)
Quarter: 2007Q4

REPORT INFORMATION
  Report Type: 
  Country: None (occurrence: None)
  Receive Date: 20071130
  Receipt Date: 20070716
  Transmission Date: 20080405
  Serious: No
  Sender: FDA-Public Use
  Company Number: US200707004069

PATIENT
  Age: 43 Year
  Sex: Female
  Weight: 83 kg

DRUGS (4)
  1. BYETTA [Suspect]
     Indication: TYPE 2 DIABETES MELLITUS
     Dosage: 5 UG, 2/D, SUBCUTANEOUS
     Route: 058
     Dates: start: 20070401
  2. GLIPIZIDE [Concomitant]
  3. LANTUS [Concomitant]
  4. ACTOS /USA/ (PIOGLITAZONE HYDROCHLORIDE) [Concomitant]

REACTIONS (6)
  - ABDOMINAL DISTENSION [None]
  - BLOOD GLUCOSE ABNORMAL [None]
  - CONSTIPATION [None]
  - DECREASED APPETITE [None]
  - GLAUCOMA [None]
  - WEIGHT DECREASED [None]
